FAERS Safety Report 9632410 (Version 1)
Quarter: 2013Q4

REPORT INFORMATION
  Report Type: Spontaneous
  Country: US (occurrence: None)
  Receive Date: 20131018
  Receipt Date: 20131018
  Transmission Date: 20140711
  Serious: No
  Sender: FDA-Public Use
  Company Number: None

PATIENT
  Age: 44 Year
  Sex: Female
  Weight: 62.6 kg

DRUGS (1)
  1. DOXYCYCLINE HYCLATE [Suspect]
     Indication: ROSACEA
     Dosage: 1 PILL
     Route: 048
     Dates: start: 20131015, end: 20131017

REACTIONS (8)
  - Irritability [None]
  - Listless [None]
  - Anhedonia [None]
  - Depressed mood [None]
  - Fatigue [None]
  - Crying [None]
  - Suicidal ideation [None]
  - Personality change [None]
